FAERS Safety Report 15641008 (Version 4)
Quarter: 2019Q1

REPORT INFORMATION
  Report Type: Report from Study
  Country: ES (occurrence: ES)
  Receive Date: 20181120
  Receipt Date: 20190326
  Transmission Date: 20190417
  Serious: Yes (Death, Life-Threatening, Hospitalization, Other)
  Sender: FDA-Public Use
  Company Number: ES-BRISTOL-MYERS SQUIBB COMPANY-BMS-2018-109176

PATIENT
  Age: 60 Year
  Sex: Female

DRUGS (2)
  1. NIVOLUMAB [Suspect]
     Active Substance: NIVOLUMAB
     Indication: NON-SMALL CELL LUNG CANCER
     Dosage: 360 MG, Q3WK
     Route: 042
     Dates: start: 20180620, end: 20181113
  2. NKTR-214 [Suspect]
     Active Substance: BEMPEGALDESLEUKIN
     Indication: NON-SMALL CELL LUNG CANCER
     Dosage: 0.006 MG/KG, Q3WK
     Route: 042
     Dates: start: 20180620, end: 20181113

REACTIONS (2)
  - Cardio-respiratory arrest [Fatal]
  - Bronchospasm [Not Recovered/Not Resolved]

NARRATIVE: CASE EVENT DATE: 20181113
